FAERS Safety Report 8009987 (Version 21)
Quarter: 2014Q4

REPORT INFORMATION
  Report Type: Spontaneous
  Country: GB (occurrence: GB)
  Receive Date: 20110627
  Receipt Date: 20141127
  Transmission Date: 20150529
  Serious: Yes (Hospitalization, Other)
  Sender: FDA-Public Use
  Company Number: GB-JNJFOC-20110608634

PATIENT
  Age: 48 Year
  Sex: Female
  Weight: 82.56 kg

DRUGS (8)
  1. HALDOL [Suspect]
     Active Substance: HALOPERIDOL
     Indication: SCHIZOPHRENIA, PARANOID TYPE
     Route: 065
  2. HALDOL [Suspect]
     Active Substance: HALOPERIDOL
     Indication: SCHIZOPHRENIA, PARANOID TYPE
     Route: 065
  3. HALDOL DECANOATE [Suspect]
     Active Substance: HALOPERIDOL DECANOATE
     Indication: SCHIZOPHRENIA, PARANOID TYPE
     Route: 030
  4. HALDOL [Suspect]
     Active Substance: HALOPERIDOL
     Indication: SCHIZOPHRENIA, PARANOID TYPE
     Route: 065
  5. DEPIXOL [Suspect]
     Active Substance: FLUPENTIXOL DECANOATE
     Indication: PRODUCT USED FOR UNKNOWN INDICATION
     Route: 065
  6. HALDOL [Suspect]
     Active Substance: HALOPERIDOL
     Indication: PRODUCT USED FOR UNKNOWN INDICATION
     Route: 065
  7. HALDOL [Suspect]
     Active Substance: HALOPERIDOL
     Indication: SCHIZOPHRENIA, PARANOID TYPE
     Route: 065
  8. CLOPIXOL [Suspect]
     Active Substance: ZUCLOPENTHIXOL ACETATE
     Indication: PRODUCT USED FOR UNKNOWN INDICATION
     Route: 065

REACTIONS (53)
  - Suicidal ideation [Recovered/Resolved]
  - Hospitalisation [Unknown]
  - Lethargy [Unknown]
  - Aggression [Not Recovered/Not Resolved]
  - Product tampering [Unknown]
  - Headache [Not Recovered/Not Resolved]
  - Persecutory delusion [Unknown]
  - Delusion [Unknown]
  - Depression [Unknown]
  - Dehydration [Unknown]
  - Amnesia [Unknown]
  - Adverse drug reaction [Unknown]
  - Pyrexia [Unknown]
  - Product odour abnormal [Unknown]
  - Sedation [Unknown]
  - Hypersensitivity [Unknown]
  - Bedridden [Unknown]
  - Feeling abnormal [Unknown]
  - Dry eye [Unknown]
  - Hallucination, auditory [Not Recovered/Not Resolved]
  - Myalgia [Unknown]
  - Thought blocking [Unknown]
  - Performance status decreased [Unknown]
  - Apathy [Not Recovered/Not Resolved]
  - Treatment noncompliance [Recovering/Resolving]
  - Body temperature increased [Unknown]
  - Agitation [Not Recovered/Not Resolved]
  - Diarrhoea [Unknown]
  - Dizziness [Unknown]
  - Urine analysis abnormal [Recovered/Resolved]
  - Incorrect drug administration rate [Unknown]
  - Pain of skin [Unknown]
  - Cognitive disorder [Unknown]
  - Insomnia [Unknown]
  - Disturbance in attention [Unknown]
  - Back pain [Unknown]
  - Vision blurred [Unknown]
  - Malaise [Unknown]
  - Injection site pain [Unknown]
  - Hallucination, visual [Unknown]
  - Restless legs syndrome [Unknown]
  - Blood cortisol increased [Unknown]
  - Obesity [Not Recovered/Not Resolved]
  - Nausea [Unknown]
  - Brain injury [Unknown]
  - Stress [Unknown]
  - Rash erythematous [Unknown]
  - Constipation [Unknown]
  - Groin pain [Unknown]
  - Drug ineffective [Unknown]
  - Irritable bowel syndrome [Not Recovered/Not Resolved]
  - Rash [Unknown]
  - Hyperhidrosis [Not Recovered/Not Resolved]

NARRATIVE: CASE EVENT DATE: 200910
